FAERS Safety Report 13834553 (Version 1)
Quarter: 2017Q3

REPORT INFORMATION
  Report Type: Spontaneous
  Country: FR (occurrence: FR)
  Receive Date: 20170804
  Receipt Date: 20170804
  Transmission Date: 20171127
  Serious: Yes (Hospitalization)
  Sender: FDA-Public Use
  Company Number: FR-ASTRAZENECA-2017SE78678

PATIENT
  Age: 8072 Day
  Sex: Male

DRUGS (4)
  1. XEROQUEL [Suspect]
     Active Substance: QUETIAPINE FUMARATE
     Indication: SCHIZOPHRENIA
     Route: 048
     Dates: start: 201701, end: 20170623
  2. XANAX [Concomitant]
     Active Substance: ALPRAZOLAM
     Dosage: 0.5/DAY
     Dates: start: 201602
  3. TERCIAN [Concomitant]
     Active Substance: CYAMEMAZINE
     Dosage: AS NEEDED
     Dates: start: 201602
  4. GAVISCON [Concomitant]
     Active Substance: ALUMINUM HYDROXIDE\MAGNESIUM CARBONATE
     Dates: start: 201602

REACTIONS (1)
  - Pancreatitis acute [Recovering/Resolving]

NARRATIVE: CASE EVENT DATE: 20170622
